FAERS Safety Report 19963199 (Version 2)
Quarter: 2021Q4

REPORT INFORMATION
  Report Type: Other
  Country: CA (occurrence: None)
  Receive Date: 20211018
  Receipt Date: 20211101
  Transmission Date: 20220303
  Serious: Yes (Hospitalization, Other)
  Sender: FDA-Public Use
  Company Number: CA-ROCHE-2911742

PATIENT
  Sex: Male
  Weight: 93 kg

DRUGS (11)
  1. ESBRIET [Suspect]
     Active Substance: PIRFENIDONE
     Indication: Idiopathic pulmonary fibrosis
     Route: 048
     Dates: start: 20140710
  2. ESBRIET [Suspect]
     Active Substance: PIRFENIDONE
     Route: 048
     Dates: start: 20140718
  3. ESBRIET [Suspect]
     Active Substance: PIRFENIDONE
     Indication: Idiopathic pulmonary fibrosis
     Route: 048
     Dates: start: 20140725, end: 20211013
  4. AMLODIPINE [Concomitant]
     Active Substance: AMLODIPINE BESYLATE
  5. CANDESARTAN [Concomitant]
     Active Substance: CANDESARTAN
  6. HYDROCHLOROTHIAZIDE [Concomitant]
     Active Substance: HYDROCHLOROTHIAZIDE
     Indication: Blood pressure measurement
  7. PANTOPRAZOLE [Concomitant]
     Active Substance: PANTOPRAZOLE
     Indication: Dysphagia
  8. PREVACID [Concomitant]
     Active Substance: LANSOPRAZOLE
  9. VESICARE [Concomitant]
     Active Substance: SOLIFENACIN SUCCINATE
  10. CALCIUM [Concomitant]
     Active Substance: CALCIUM
  11. OXYGEN [Concomitant]
     Active Substance: OXYGEN

REACTIONS (6)
  - Haemorrhagic stroke [Unknown]
  - Lung neoplasm malignant [Unknown]
  - Metastases to central nervous system [Unknown]
  - Walking aid user [Unknown]
  - Dysphagia [Unknown]
  - Palliative care [Unknown]

NARRATIVE: CASE EVENT DATE: 20210101
